FAERS Safety Report 5535498-9 (Version None)
Quarter: 2007Q4

REPORT INFORMATION
  Report Type: 
  Country: None (occurrence: None)
  Receive Date: 20071203
  Receipt Date: 20071203
  Transmission Date: 20080405
  Serious: No
  Sender: FDA-Public Use
  Company Number: None

PATIENT
  Age: 7 Year
  Sex: Male
  Weight: 34.4734 kg

DRUGS (2)
  1. TOPAMAX [Suspect]
     Indication: ABNORMAL BEHAVIOUR
     Dosage: ONE-HALF  DAILY  PO
     Route: 048
     Dates: start: 20071119, end: 20071123
  2. TOPAMAX [Suspect]
     Dosage: ONE TAB  DAILY PO
     Route: 048
     Dates: start: 20071123, end: 20071127

REACTIONS (2)
  - ANTERIOR CHAMBER DISORDER [None]
  - MYOPIA [None]
